FAERS Safety Report 23269152 (Version 1)
Quarter: 2023Q4

REPORT INFORMATION
  Report Type: Report from Study
  Country: US (occurrence: US)
  Receive Date: 20231206
  Receipt Date: 20231206
  Transmission Date: 20240110
  Serious: Yes (Other)
  Sender: FDA-Public Use
  Company Number: US-ABBVIE-5525789

PATIENT
  Sex: Female

DRUGS (1)
  1. RINVOQ [Suspect]
     Active Substance: UPADACITINIB
     Indication: Colitis ulcerative
     Dosage: RINVOQ FORM STRENGTH: 30 MG
     Route: 048
     Dates: start: 20231006

REACTIONS (13)
  - Endodontic procedure [Unknown]
  - Ocular discomfort [Unknown]
  - Flatulence [Unknown]
  - Stress [Unknown]
  - Defaecation urgency [Unknown]
  - Oral herpes [Recovered/Resolved]
  - Frequent bowel movements [Unknown]
  - Chills [Not Recovered/Not Resolved]
  - Nausea [Unknown]
  - Abdominal discomfort [Unknown]
  - Diarrhoea [Unknown]
  - Sinus disorder [Recovered/Resolved]
  - Fluid intake reduced [Unknown]

NARRATIVE: CASE EVENT DATE: 20230101
